FAERS Safety Report 8029715-3 (Version None)
Quarter: 2012Q1

REPORT INFORMATION
  Report Type: 
  Country: None (occurrence: None)
  Receive Date: 20120104
  Receipt Date: 20111227
  Transmission Date: 20120608
  Serious: Yes (Death)
  Sender: FDA-Public Use
  Company Number: 2011VX003802

PATIENT
  Age: 47 Year
  Sex: Male

DRUGS (8)
  1. TRAZODONE HCL [Suspect]
     Route: 048
  2. CHLORAL HYDRATE [Suspect]
     Route: 048
  3. DALMANE [Suspect]
     Route: 048
  4. MIRTAZAPINE [Suspect]
     Route: 048
  5. BUSPIRONE HCL [Suspect]
     Route: 048
  6. GABAPENTIN [Suspect]
     Route: 048
  7. VENLAFAXINE [Suspect]
     Route: 048
  8. ZOLPIDEM [Suspect]
     Route: 048

REACTIONS (1)
  - COMPLETED SUICIDE [None]
